FAERS Safety Report 8265529-7 (Version None)
Quarter: 2012Q2

REPORT INFORMATION
  Report Type: 
  Country: None (occurrence: None)
  Receive Date: 20120406
  Receipt Date: 20120403
  Transmission Date: 20120825
  Serious: Yes (Other)
  Sender: FDA-Public Use
  Company Number: US-PFIZER INC-2012084548

PATIENT
  Sex: Female
  Weight: 76.644 kg

DRUGS (5)
  1. WELLBUTRIN [Concomitant]
     Dosage: UNK
     Dates: end: 20110101
  2. XANAX [Suspect]
     Dosage: 1 MG, 3X/DAY
     Dates: start: 19990101
  3. PRISTIQ [Suspect]
     Dosage: UNK
     Route: 048
     Dates: start: 20111101
  4. ZYRTEC [Concomitant]
     Indication: HYPERSENSITIVITY
     Dosage: 10 MG, DAILY
  5. AMBIEN [Concomitant]
     Indication: INSOMNIA
     Dosage: 10 MG, AS NEEDED

REACTIONS (2)
  - HEPATITIS C [None]
  - WRONG TECHNIQUE IN DRUG USAGE PROCESS [None]
